FAERS Safety Report 17884077 (Version 1)
Quarter: 2020Q2

REPORT INFORMATION
  Report Type: Spontaneous
  Country: US (occurrence: US)
  Receive Date: 20200610
  Receipt Date: 20200610
  Transmission Date: 20200714
  Serious: Yes (Hospitalization)
  Sender: FDA-Public Use
  Company Number: None

PATIENT
  Age: 51 Year
  Sex: Female
  Weight: 85 kg

DRUGS (2)
  1. TIZANIDINE. [Suspect]
     Active Substance: TIZANIDINE
     Indication: CANCER PAIN
     Route: 048
     Dates: start: 20200217, end: 20200419
  2. TIZANIDINE. [Suspect]
     Active Substance: TIZANIDINE
     Indication: MUSCLE SPASMS
     Route: 048
     Dates: start: 20200217, end: 20200419

REACTIONS (17)
  - Drug interaction [None]
  - Therapy interrupted [None]
  - Tachycardia [None]
  - Liver function test increased [None]
  - Blood bilirubin increased [None]
  - Alanine aminotransferase increased [None]
  - Flushing [None]
  - Hyperbilirubinaemia [None]
  - Chills [None]
  - Dizziness [None]
  - Hepatitis acute [None]
  - Hypertension [None]
  - Liver injury [None]
  - Hypotension [None]
  - Fatigue [None]
  - Fall [None]
  - Aspartate aminotransferase increased [None]

NARRATIVE: CASE EVENT DATE: 20200419
